FAERS Safety Report 8989369 (Version 1)
Quarter: 2012Q4

REPORT INFORMATION
  Report Type: 
  Country: TW (occurrence: TW)
  Receive Date: 20121227
  Receipt Date: 20121227
  Transmission Date: 20130627
  Serious: Yes (Other)
  Sender: FDA-Public Use
  Company Number: TW-BAXTER-2012BAX028841

PATIENT
  Age: 45 Year
  Sex: Male

DRUGS (1)
  1. ENDOXAN [Suspect]
     Indication: STEM CELL TRANSPLANT

REACTIONS (2)
  - Pericardial effusion [Recovered/Resolved]
  - Dyspnoea [Recovered/Resolved]
